FAERS Safety Report 8283181-1 (Version None)
Quarter: 2012Q2

REPORT INFORMATION
  Report Type: 
  Country: None (occurrence: None)
  Receive Date: 20120413
  Receipt Date: 20120404
  Transmission Date: 20120825
  Serious: Yes (Hospitalization, Other)
  Sender: FDA-Public Use
  Company Number: ES-JNJFOC-20090709483

PATIENT
  Age: 61 Year
  Sex: Female
  Weight: 72 kg

DRUGS (5)
  1. GLUCOCORTICOIDS [Concomitant]
  2. REMICADE [Suspect]
     Dosage: DOSE: ^200^ (UNITS NOT PROVIDED)
     Route: 042
     Dates: start: 20021127
  3. METHOTREXATE [Concomitant]
  4. REMICADE [Suspect]
     Indication: RHEUMATOID ARTHRITIS
     Route: 042
     Dates: end: 20050112
  5. REMICADE [Suspect]
     Route: 042
     Dates: start: 20041130

REACTIONS (2)
  - PULMONARY TUBERCULOSIS [None]
  - LYMPHADENOPATHY [None]
